FAERS Safety Report 8840353 (Version 1)
Quarter: 2012Q4

REPORT INFORMATION
  Report Type: 
  Country: US (occurrence: US)
  Receive Date: 20121015
  Receipt Date: 20121015
  Transmission Date: 20130627
  Serious: Yes (Hospitalization)
  Sender: FDA-Public Use
  Company Number: US-B.I. PHARMACEUTICALS,INC./RIDGEFIELD-2012-BP-25168BP

PATIENT
  Age: 84 Year
  Sex: Female
  Weight: 50 kg

DRUGS (26)
  1. PRADAXA [Suspect]
     Indication: ANTICOAGULANT THERAPY
     Dosage: 300 mg
     Route: 048
     Dates: start: 20120101, end: 201204
  2. PRADAXA [Suspect]
     Indication: ATRIAL FIBRILLATION
     Dosage: 150 mg
     Route: 048
     Dates: start: 201204, end: 201208
  3. NEXIUM [Concomitant]
     Indication: GASTROOESOPHAGEAL REFLUX DISEASE
     Dosage: 40 mg
     Route: 048
     Dates: start: 2002
  4. CLARITIN [Concomitant]
     Indication: HYPERSENSITIVITY
     Dosage: 10 mg
     Route: 048
  5. CLONIDINE [Concomitant]
     Dosage: 0.2 mg
     Route: 048
     Dates: start: 20120907
  6. LASIX [Concomitant]
     Dosage: 20 mg
     Route: 048
  7. PROCRIT [Concomitant]
     Indication: ANAEMIA
     Route: 058
  8. SINGULAIR [Concomitant]
     Indication: HYPERSENSITIVITY
     Dosage: 10 mg
     Route: 048
  9. HYDRALAZINE [Concomitant]
     Dosage: 150 mg
     Route: 048
     Dates: start: 20120907
  10. MUCINEX [Concomitant]
     Indication: HYPERSENSITIVITY
     Route: 048
  11. PRAVASTATIN [Concomitant]
     Indication: BLOOD CHOLESTEROL INCREASED
     Dosage: 20 mg
     Route: 048
  12. BABY ASPIRIN [Concomitant]
     Indication: ANTICOAGULANT THERAPY
     Dosage: 81 mg
     Route: 048
  13. MEGESTROL [Concomitant]
     Indication: DECREASED APPETITE
     Dosage: 40 mg
     Route: 048
     Dates: start: 201110
  14. LEVOTHYROXINE [Concomitant]
     Indication: HYPOTHYROIDISM
     Dosage: 50 mcg
     Route: 048
  15. KLOR CON [Concomitant]
     Indication: BLOOD POTASSIUM ABNORMAL
     Dosage: 20 mEq
     Route: 048
     Dates: start: 201203, end: 20120822
  16. TYLENOL [Concomitant]
     Indication: PAIN
     Route: 048
  17. SUPLENA [Concomitant]
     Indication: MEDICAL DIET
     Dosage: 720 ml
     Dates: start: 201209
  18. CITRACAL [Concomitant]
     Indication: SUPPLEMENTATION THERAPY
     Route: 048
  19. CARVEDILOL [Concomitant]
     Indication: CARDIAC DISORDER
     Dosage: 50 mg
     Route: 048
  20. VITAMIN C [Concomitant]
     Route: 048
  21. CELEXA [Concomitant]
     Dosage: 20 mg
     Route: 048
  22. DENZAPINE [Concomitant]
     Indication: DEMENTIA
     Dosage: 5 mg
     Route: 048
  23. LORTAB [Concomitant]
     Indication: PAIN
     Route: 048
     Dates: start: 2010
  24. FOLIC ACID [Concomitant]
     Indication: ANAEMIA
     Dosage: 1 mg
     Route: 048
     Dates: start: 2002
  25. PACERONE [Concomitant]
     Indication: CARDIAC DISORDER
     Dosage: 200 mg
     Route: 048
     Dates: start: 2005
  26. WOMENS MULTI VITAMIN [Concomitant]
     Route: 048

REACTIONS (3)
  - Pneumonia [Recovered/Resolved]
  - Cardiac failure congestive [Recovered/Resolved]
  - Blood potassium increased [Recovered/Resolved]
